FAERS Safety Report 8171954-5 (Version None)
Quarter: 2012Q1

REPORT INFORMATION
  Report Type: 
  Country: None (occurrence: None)
  Receive Date: 20120228
  Receipt Date: 20120209
  Transmission Date: 20120608
  Serious: Yes (Other)
  Sender: FDA-Public Use
  Company Number: AU-ROCHE-1014849

PATIENT
  Sex: Male
  Weight: 97.3 kg

DRUGS (5)
  1. DESVENLAFAXINE [Concomitant]
     Dates: start: 20110620
  2. GDC-0973 (MEK INHIBITOR) [Suspect]
     Indication: METASTATIC MALIGNANT MELANOMA
     Dosage: FOR 14 DAYS
     Route: 048
     Dates: start: 20110630
  3. OXAZEPAM [Concomitant]
     Dates: start: 20110526
  4. ACETAMINOPHEN W/ CODEINE [Concomitant]
     Dates: start: 20110616
  5. VEMURAFENIB [Suspect]
     Indication: METASTATIC MALIGNANT MELANOMA
     Dosage: RECENT DOSE ON 05/OCT/2011
     Route: 048
     Dates: start: 20100503

REACTIONS (1)
  - TONSIL CANCER [None]
